FAERS Safety Report 6750442-4 (Version None)
Quarter: 2010Q2

REPORT INFORMATION
  Report Type: 
  Country: None (occurrence: None)
  Receive Date: 20100527
  Receipt Date: 20100514
  Transmission Date: 20101027
  Serious: Yes (Other)
  Sender: FDA-Public Use
  Company Number: CA-002076

PATIENT
  Sex: Male

DRUGS (1)
  1. FIRMAGON [Suspect]
     Indication: DRUG USE FOR UNKNOWN INDICATION

REACTIONS (3)
  - BLOOD ALKALINE PHOSPHATASE INCREASED [None]
  - MYOCARDIAL INFARCTION [None]
  - PROSTATIC SPECIFIC ANTIGEN INCREASED [None]
